FAERS Safety Report 14769620 (Version 3)
Quarter: 2018Q4

REPORT INFORMATION
  Report Type: Report from Study
  Country: US (occurrence: US)
  Receive Date: 20180417
  Receipt Date: 20181024
  Transmission Date: 20190204
  Serious: Yes (Death, Hospitalization, Other)
  Sender: FDA-Public Use
  Company Number: US-BAYER-2018-002076

PATIENT
  Age: 77 Year
  Sex: Male

DRUGS (4)
  1. ATORVASTATIN [Concomitant]
     Active Substance: ATORVASTATIN
     Dosage: DAILY DOSE 20 MG
  2. NEXAVAR [Suspect]
     Active Substance: SORAFENIB
     Indication: HEPATOCELLULAR CARCINOMA
     Dosage: 400 MG, BID
     Route: 048
     Dates: start: 20171230
  3. LISINOPRIL. [Concomitant]
     Active Substance: LISINOPRIL
     Dosage: DAILY DOSE 10 MG
  4. NEXAVAR [Suspect]
     Active Substance: SORAFENIB
     Indication: HEPATOCELLULAR CARCINOMA
     Dosage: 400 MG, BID
     Route: 048
     Dates: start: 201803, end: 201804

REACTIONS (34)
  - Impaired self-care [None]
  - Peripheral swelling [None]
  - Asthenia [None]
  - Fall [None]
  - Exercise tolerance decreased [None]
  - Hypersomnia [None]
  - Balance disorder [None]
  - Pre-existing condition improved [None]
  - Dysphonia [None]
  - Intentional dose omission [None]
  - Death [Fatal]
  - Head injury [None]
  - Loss of personal independence in daily activities [None]
  - Swelling [None]
  - Lethargy [None]
  - Productive cough [Recovering/Resolving]
  - Pneumonia [None]
  - Scab [Recovered/Resolved]
  - Bedridden [None]
  - Decubitus ulcer [None]
  - Confusional state [None]
  - Protein urine present [None]
  - Fatigue [Not Recovered/Not Resolved]
  - Constipation [None]
  - Product dose omission [None]
  - Skin disorder [Recovered/Resolved]
  - Cerebrovascular accident [None]
  - Pulmonary congestion [None]
  - Dyspnoea [None]
  - Scrotal swelling [None]
  - Fluid retention [None]
  - Erythema [Recovered/Resolved]
  - Diarrhoea [Recovered/Resolved]
  - Mouth haemorrhage [None]

NARRATIVE: CASE EVENT DATE: 2018
